FAERS Safety Report 13097049 (Version 1)
Quarter: 2017Q1

REPORT INFORMATION
  Report Type: Spontaneous
  Country: US (occurrence: US)
  Receive Date: 20170106
  Receipt Date: 20170106
  Transmission Date: 20170428
  Serious: Yes (Hospitalization)
  Sender: FDA-Public Use
  Company Number: None

PATIENT
  Age: 85 Year
  Sex: Female
  Weight: 58.5 kg

DRUGS (4)
  1. IMIQUIMOD CREAM 5% FOUGERA [Suspect]
     Active Substance: IMIQUIMOD
     Indication: SKIN DISORDER
     Dosage: ?          QUANTITY:24 FOILPACS;?
     Route: 061
     Dates: start: 20161212, end: 20161223
  2. CENTRUM MULTI VITAMIN MAGNESIUM [Concomitant]
  3. CALCIUM [Concomitant]
     Active Substance: CALCIUM
  4. LUETIN [Concomitant]

REACTIONS (7)
  - Decreased appetite [None]
  - Nervousness [None]
  - Fatigue [None]
  - Depression [None]
  - Diarrhoea [None]
  - Deafness [None]
  - Asthenia [None]

NARRATIVE: CASE EVENT DATE: 20161212
